FAERS Safety Report 6496094-2 (Version None)
Quarter: 2009Q4

REPORT INFORMATION
  Report Type: 
  Country: None (occurrence: None)
  Receive Date: 20091214
  Receipt Date: 20091007
  Transmission Date: 20100525
  Serious: No
  Sender: FDA-Public Use
  Company Number: US-BRISTOL-MYERS SQUIBB COMPANY-14795223

PATIENT
  Age: 74 Year
  Sex: Female
  Weight: 79 kg

DRUGS (8)
  1. ABILIFY [Suspect]
     Indication: DEPRESSION
     Dosage: INCREASED TO 10MG/D
     Dates: start: 20090101, end: 20090927
  2. SYNTHROID [Concomitant]
  3. TOPROL-XL [Concomitant]
  4. LOTREL [Concomitant]
  5. HUMIRA [Concomitant]
  6. ARAVA [Concomitant]
  7. NEXIUM [Concomitant]
  8. EFFEXOR [Concomitant]

REACTIONS (3)
  - DYSKINESIA [None]
  - MENTAL IMPAIRMENT [None]
  - OEDEMA PERIPHERAL [None]
